FAERS Safety Report 7388443-8 (Version None)
Quarter: 2011Q2

REPORT INFORMATION
  Report Type: 
  Country: None (occurrence: None)
  Receive Date: 20110401
  Receipt Date: 20110321
  Transmission Date: 20111010
  Serious: Yes (Other)
  Sender: FDA-Public Use
  Company Number: FR-PFIZER INC-2011071065

PATIENT
  Age: 32 Year
  Sex: Female
  Weight: 45 kg

DRUGS (6)
  1. PRIMALAN [Suspect]
     Indication: TINEA VERSICOLOUR
     Dosage: 3 TABLETS DAILY
     Route: 048
     Dates: start: 20110127, end: 20110129
  2. ATARAX [Suspect]
     Dosage: 1 TABLET IN THE EVENING
     Route: 048
     Dates: start: 20110127, end: 20110129
  3. ATARAX [Suspect]
     Dosage: 1/2 TO 1 TABLET DAILY
     Route: 048
     Dates: start: 20110101
  4. ATARAX [Suspect]
     Indication: TINEA VERSICOLOUR
     Dosage: 25 MG, UNK
     Route: 048
     Dates: start: 20110127, end: 20110129
  5. PRIMALAN [Suspect]
     Dosage: 1/2 TABLET TWICE DAILY
     Route: 048
     Dates: start: 20110101
  6. PRIMALAN [Suspect]
     Dosage: UNK

REACTIONS (5)
  - HYPOAESTHESIA [None]
  - DRY MOUTH [None]
  - OFF LABEL USE [None]
  - VISION BLURRED [None]
  - ASTHENIA [None]
